FAERS Safety Report 6733482-0 (Version None)
Quarter: 2010Q2

REPORT INFORMATION
  Report Type: 
  Country: None (occurrence: None)
  Receive Date: 20100518
  Receipt Date: 20100504
  Transmission Date: 20101027
  Serious: Yes (Other)
  Sender: FDA-Public Use
  Company Number: TRP_06954_2010

PATIENT
  Age: 60 Year
  Sex: Male

DRUGS (2)
  1. INTERFERON ALFA [Suspect]
     Indication: HEPATITIS C
     Dosage: DF
  2. RIBAVIRIN [Suspect]
     Indication: HEPATITIS C
     Dosage: DF

REACTIONS (4)
  - ANAEMIA [None]
  - FOCAL SEGMENTAL GLOMERULOSCLEROSIS [None]
  - GLOMERULOSCLEROSIS [None]
  - RENAL FAILURE ACUTE [None]
